FAERS Safety Report 19588918 (Version 1)
Quarter: 2021Q3

REPORT INFORMATION
  Report Type: Spontaneous
  Country: US (occurrence: US)
  Receive Date: 20210721
  Receipt Date: 20210721
  Transmission Date: 20211014
  Serious: Yes (Disabling)
  Sender: FDA-Public Use
  Company Number: None

PATIENT
  Age: 61 Year
  Sex: Female
  Weight: 68.04 kg

DRUGS (4)
  1. COREG [Concomitant]
     Active Substance: CARVEDILOL
  2. PROTONIX [Concomitant]
     Active Substance: PANTOPRAZOLE SODIUM
  3. MULTI?VITAMINS [Concomitant]
  4. MVASI [Suspect]
     Active Substance: BEVACIZUMAB-AWWB
     Indication: OVARIAN CANCER
     Dosage: ?          OTHER FREQUENCY:INFUSION;?
     Route: 042
     Dates: start: 20201030

REACTIONS (2)
  - Musculoskeletal stiffness [None]
  - Neck pain [None]

NARRATIVE: CASE EVENT DATE: 20210330
